FAERS Safety Report 20044752 (Version 1)
Quarter: 2021Q4

REPORT INFORMATION
  Report Type: Spontaneous
  Country: DE (occurrence: DE)
  Receive Date: 20211108
  Receipt Date: 20211108
  Transmission Date: 20220303
  Serious: Yes (Other)
  Sender: FDA-Public Use
  Company Number: None

PATIENT
  Age: 33 Year
  Sex: Female

DRUGS (1)
  1. CYTOTEC [Suspect]
     Active Substance: MISOPROSTOL
     Indication: Labour induction
     Dosage: UNK
     Dates: start: 20140324

REACTIONS (13)
  - Haemorrhage [Recovered/Resolved]
  - Rib fracture [Recovered/Resolved]
  - Perineal injury [Recovered/Resolved]
  - Circulatory collapse [Recovered/Resolved]
  - Chest injury [Recovered/Resolved]
  - Micturition disorder [Recovered/Resolved]
  - Blood pressure decreased [Recovered/Resolved]
  - Uterine tachysystole [Recovered/Resolved]
  - Urinary tract infection [Recovered/Resolved]
  - Vomiting [Recovered/Resolved]
  - Nausea [Recovered/Resolved]
  - Musculoskeletal chest pain [Recovered/Resolved]
  - Off label use [Recovered/Resolved]

NARRATIVE: CASE EVENT DATE: 20140324
